FAERS Safety Report 6099692-3 (Version None)
Quarter: 2009Q1

REPORT INFORMATION
  Report Type: 
  Country: None (occurrence: None)
  Receive Date: 20090303
  Receipt Date: 20090129
  Transmission Date: 20090719
  Serious: No
  Sender: FDA-Public Use
  Company Number: US-BAYER-200910354BCC

PATIENT
  Age: 42 Year
  Sex: Female
  Weight: 68 kg

DRUGS (1)
  1. ALEVE [Suspect]
     Indication: HEADACHE
     Dosage: TOTAL DAILY DOSE: 220 MG  UNIT DOSE: 220 MG
     Dates: start: 20090129

REACTIONS (1)
  - HEADACHE [None]
